FAERS Safety Report 6840005-4 (Version None)
Quarter: 2010Q3

REPORT INFORMATION
  Report Type: 
  Country: None (occurrence: None)
  Receive Date: 20100714
  Receipt Date: 20100707
  Transmission Date: 20110219
  Serious: Yes (Hospitalization, Other)
  Sender: FDA-Public Use
  Company Number: US-ROCHE-700548

PATIENT
  Sex: Female
  Weight: 92.5 kg

DRUGS (4)
  1. PEGASYS [Suspect]
     Indication: HEPATITIS C
     Dosage: FORM: PRE-FILLED SYRINGE
     Route: 058
     Dates: start: 20100314, end: 20100612
  2. COPEGUS [Suspect]
     Indication: HEPATITIS C
     Route: 048
     Dates: start: 20100314, end: 20100612
  3. LIDODERM [Concomitant]
  4. CARVEDILOL [Concomitant]
     Indication: HYPERTENSION
     Dosage: DOSE: 3.125 FREQUENCY: QD
     Route: 048
     Dates: start: 20091105

REACTIONS (12)
  - ANAEMIA [None]
  - ASTHENIA [None]
  - CHROMATURIA [None]
  - DIZZINESS [None]
  - DRUG DOSE OMISSION [None]
  - EPISTAXIS [None]
  - EYE HAEMORRHAGE [None]
  - FATIGUE [None]
  - INFLUENZA LIKE ILLNESS [None]
  - PYREXIA [None]
  - THROMBOCYTOPENIA [None]
  - WEIGHT DECREASED [None]
